FAERS Safety Report 11066533 (Version 1)
Quarter: 2015Q2

REPORT INFORMATION
  Report Type: Spontaneous
  Country: CA (occurrence: None)
  Receive Date: 20150423
  Receipt Date: 20150423
  Transmission Date: 20150821
  Serious: Yes (Hospitalization)
  Sender: FDA-Public Use
  Company Number: CA-2014VAL000307

PATIENT
  Age: 26 Year
  Sex: Female

DRUGS (6)
  1. METOPROLOL TARTRATE. [Suspect]
     Active Substance: METOPROLOL TARTRATE
     Indication: ATRIAL FLUTTER
     Route: 048
     Dates: start: 20130522, end: 20130712
  2. ENOXAPARIN (ENOXAPARIN) [Suspect]
     Active Substance: ENOXAPARIN
     Indication: ATRIAL FLUTTER
  3. METOPROLOL TARTRATE. [Suspect]
     Active Substance: METOPROLOL TARTRATE
     Indication: OFF LABEL USE
     Route: 048
     Dates: start: 20130522, end: 20130712
  4. ENOXAPARIN (ENOXAPARIN) [Suspect]
     Active Substance: ENOXAPARIN
  5. DIGOXIN (DIGOXIN) [Suspect]
     Active Substance: DIGOXIN
     Indication: ATRIAL FLUTTER
  6. CERVIDIL [Suspect]
     Active Substance: DINOPROSTONE
     Indication: LABOUR INDUCTION

REACTIONS (4)
  - Tachycardia [None]
  - Atrial flutter [None]
  - Maternal exposure during pregnancy [None]
  - Cardiomyopathy [None]
